FAERS Safety Report 9342828 (Version 2)
Quarter: 2013Q3

REPORT INFORMATION
  Report Type: Spontaneous
  Country: US (occurrence: US)
  Receive Date: 20130611
  Receipt Date: 20130808
  Transmission Date: 20140515
  Serious: Yes (Hospitalization, Other)
  Sender: FDA-Public Use
  Company Number: US-UCBSA-075868

PATIENT
  Age: 53 Year
  Sex: Male
  Weight: 122.9 kg

DRUGS (2)
  1. KEPPRA [Suspect]
     Indication: CONVULSION
     Dates: start: 20130131, end: 20130424
  2. KEPPRA [Interacting]
     Indication: CONVULSION
     Dosage: INCREASED UPTO 1000 MG
     Dates: start: 20130425

REACTIONS (7)
  - Convulsion [Recovered/Resolved]
  - Head discomfort [Unknown]
  - Abdominal distension [Unknown]
  - Vomiting [Unknown]
  - Chest pain [Unknown]
  - Anticonvulsant drug level decreased [Recovered/Resolved]
  - Drug interaction [Unknown]
